FAERS Safety Report 8776834 (Version 2)
Quarter: 2012Q4

REPORT INFORMATION
  Report Type: 
  Country: AU (occurrence: AU)
  Receive Date: 20120910
  Receipt Date: 20120910
  Transmission Date: 20130627
  Serious: Yes (Other)
  Sender: FDA-Public Use
  Company Number: AU-009507513-2012SP025310

PATIENT

DRUGS (2)
  1. AVANZA [Suspect]
     Dosage: UNK UNK,
     Route: 048
  2. OLANZAPINE [Suspect]
     Dosage: UNK UNK,

REACTIONS (1)
  - Neuroleptic malignant syndrome [Unknown]
